FAERS Safety Report 14236165 (Version 2)
Quarter: 2017Q4

REPORT INFORMATION
  Report Type: Report from Study
  Country: MX (occurrence: MX)
  Receive Date: 20171129
  Receipt Date: 20171229
  Transmission Date: 20180321
  Serious: Yes (Other)
  Sender: FDA-Public Use
  Company Number: PHHY2017MX175297

PATIENT
  Age: 36 Year
  Sex: Male

DRUGS (2)
  1. EXFORGE [Suspect]
     Active Substance: AMLODIPINE BESYLATE\VALSARTAN
     Dosage: 2 DF (VALSARTAN 160 MG, AMLODIPINE 5 MG), QD
     Route: 065
     Dates: start: 201709
  2. EXFORGE [Suspect]
     Active Substance: AMLODIPINE BESYLATE\VALSARTAN
     Indication: HYPERTENSION
     Dosage: (VALSARTAN 160 MG, AMLODIPINE 5 MG)
     Route: 065
     Dates: start: 2012

REACTIONS (3)
  - Inappropriate schedule of drug administration [Unknown]
  - Kidney transplant rejection [Not Recovered/Not Resolved]
  - Blood pressure increased [Unknown]

NARRATIVE: CASE EVENT DATE: 201205
